FAERS Safety Report 25892405 (Version 1)
Quarter: 2025Q4

REPORT INFORMATION
  Report Type: Spontaneous
  Country: US (occurrence: US)
  Receive Date: 20251007
  Receipt Date: 20251007
  Transmission Date: 20260117
  Serious: No
  Sender: DR REDDYS
  Company Number: None

PATIENT
  Sex: Female

DRUGS (8)
  1. TAMOXIFEN [Suspect]
     Active Substance: TAMOXIFEN
     Indication: Breast cancer metastatic
     Dates: start: 2023, end: 2023
  2. TAMOXIFEN [Suspect]
     Active Substance: TAMOXIFEN
     Indication: Metastases to liver
  3. TAMOXIFEN [Suspect]
     Active Substance: TAMOXIFEN
     Indication: Metastases to lung
  4. TAMOXIFEN [Suspect]
     Active Substance: TAMOXIFEN
     Indication: Metastases to bone
  5. LEUPROLIDE ACETATE [Suspect]
     Active Substance: LEUPROLIDE ACETATE
     Indication: Breast cancer metastatic
     Dates: start: 2023, end: 2023
  6. LEUPROLIDE ACETATE [Suspect]
     Active Substance: LEUPROLIDE ACETATE
     Indication: Metastases to liver
  7. LEUPROLIDE ACETATE [Suspect]
     Active Substance: LEUPROLIDE ACETATE
     Indication: Metastases to lung
  8. LEUPROLIDE ACETATE [Suspect]
     Active Substance: LEUPROLIDE ACETATE
     Indication: Metastases to bone

REACTIONS (1)
  - Arthralgia [Unknown]

NARRATIVE: CASE EVENT DATE: 20230101
